FAERS Safety Report 19274953 (Version 2)
Quarter: 2021Q2

REPORT INFORMATION
  Report Type: Spontaneous
  Country: US (occurrence: US)
  Receive Date: 20210519
  Receipt Date: 20210609
  Transmission Date: 20210717
  Serious: No
  Sender: FDA-Public Use
  Company Number: US-TEVA-2021-US-1910804

PATIENT
  Age: 88 Year
  Sex: Female
  Weight: 72.57 kg

DRUGS (6)
  1. ALEVE [Concomitant]
     Active Substance: NAPROXEN SODIUM
  2. VICKS SINEX [Concomitant]
     Active Substance: ACETAMINOPHEN\PHENYLEPHRINE HYDROCHLORIDE
     Dosage: SEVERE MOISTURIZING FINE MIST
  3. SYNTHROID 75 [Concomitant]
     Indication: THYROID DISORDER
  4. ADVIL [Concomitant]
     Active Substance: IBUPROFEN
  5. FLONASE [Concomitant]
     Active Substance: FLUTICASONE PROPIONATE
     Route: 045
  6. QVAR REDIHALER [Suspect]
     Active Substance: BECLOMETHASONE DIPROPIONATE
     Indication: DYSPNOEA
     Route: 055
     Dates: start: 202103, end: 202104

REACTIONS (8)
  - Coordination abnormal [Unknown]
  - Candida infection [Recovered/Resolved]
  - Product use in unapproved indication [Unknown]
  - Anxiety [Unknown]
  - Inappropriate schedule of product administration [Unknown]
  - Wheezing [Not Recovered/Not Resolved]
  - Drug hypersensitivity [Unknown]
  - Dizziness [Unknown]

NARRATIVE: CASE EVENT DATE: 2021
